FAERS Safety Report 9723292 (Version 1)
Quarter: 2013Q4

REPORT INFORMATION
  Report Type: Spontaneous
  Country: US (occurrence: US)
  Receive Date: 20131202
  Receipt Date: 20131202
  Transmission Date: 20140711
  Serious: Yes (Hospitalization, Other)
  Sender: FDA-Public Use
  Company Number: US-AMGEN-USASP2013084601

PATIENT
  Age: 51 Year
  Sex: Female
  Weight: 64.85 kg

DRUGS (11)
  1. ENBREL [Suspect]
     Indication: RHEUMATOID ARTHRITIS
     Dosage: 50 MG, QWK
     Route: 058
     Dates: start: 2010
  2. TRILEPTAL [Concomitant]
     Dosage: UNK
  3. ZYPREXA [Concomitant]
     Dosage: UNK
  4. MVI                                /01825701/ [Concomitant]
     Dosage: UNK
  5. AXERT [Concomitant]
     Dosage: UNK
  6. HYALURONIC ACID [Concomitant]
     Dosage: UNK
  7. MSM [Concomitant]
     Dosage: UNK
  8. SKELAXIN                           /00611501/ [Concomitant]
     Dosage: UNK
  9. POTASSIUM [Concomitant]
     Dosage: UNK
  10. VITAMIN K                          /00032401/ [Concomitant]
     Dosage: UNK
  11. ECHINACEA PURPUREA [Concomitant]
     Dosage: UNK

REACTIONS (7)
  - Knee arthroplasty [Recovering/Resolving]
  - Dizziness [Not Recovered/Not Resolved]
  - Headache [Not Recovered/Not Resolved]
  - Pyrexia [Not Recovered/Not Resolved]
  - Chills [Not Recovered/Not Resolved]
  - Cough [Not Recovered/Not Resolved]
  - Nasopharyngitis [Not Recovered/Not Resolved]
